FAERS Safety Report 18642383 (Version 1)
Quarter: 2020Q4

REPORT INFORMATION
  Report Type: Spontaneous
  Country: US (occurrence: US)
  Receive Date: 20201218
  Receipt Date: 20201218
  Transmission Date: 20210114
  Serious: Yes (Hospitalization, Other)
  Sender: FDA-Public Use
  Company Number: None

PATIENT
  Age: 37 Year
  Sex: Male
  Weight: 75 kg

DRUGS (2)
  1. DAPTOMYCIN. [Suspect]
     Active Substance: DAPTOMYCIN
     Indication: STAPHYLOCOCCAL SEPSIS
     Route: 042
     Dates: start: 20201125, end: 20201210
  2. DAPTOMYCIN. [Suspect]
     Active Substance: DAPTOMYCIN
     Indication: ARTHRITIS BACTERIAL
     Route: 042
     Dates: start: 20201125, end: 20201210

REACTIONS (6)
  - Agitation [None]
  - Mental status changes [None]
  - Blood creatine phosphokinase increased [None]
  - Blood creatinine increased [None]
  - Tachycardia [None]
  - Pain [None]

NARRATIVE: CASE EVENT DATE: 20201210
